FAERS Safety Report 25526718 (Version 1)
Quarter: 2025Q3

REPORT INFORMATION
  Report Type: Spontaneous
  Country: MX (occurrence: MX)
  Receive Date: 20250707
  Receipt Date: 20250707
  Transmission Date: 20251021
  Serious: Yes (Other)
  Sender: SERVIER
  Company Number: MX-SERVIER-S25009460

PATIENT

DRUGS (2)
  1. ONCASPAR [Suspect]
     Active Substance: PEGASPARGASE
     Indication: Product used for unknown indication
     Route: 042
  2. ONCASPAR [Suspect]
     Active Substance: PEGASPARGASE
     Route: 042
     Dates: start: 20250626

REACTIONS (5)
  - Tachycardia [Unknown]
  - Lip oedema [Unknown]
  - Abdominal pain [Unknown]
  - Irritability [Unknown]
  - Lip erythema [Unknown]

NARRATIVE: CASE EVENT DATE: 20250626
